FAERS Safety Report 9105835 (Version 1)
Quarter: 2013Q1

REPORT INFORMATION
  Report Type: Spontaneous
  Country: US (occurrence: US)
  Receive Date: 20130220
  Receipt Date: 20130220
  Transmission Date: 20140127
  Serious: No
  Sender: FDA-Public Use
  Company Number: US-PFIZER INC-2013061908

PATIENT
  Age: 53 Year
  Sex: Female
  Weight: 50.34 kg

DRUGS (4)
  1. ENBREL [Suspect]
     Dosage: UNK
  2. METHOTREXATE SODIUM [Suspect]
     Dosage: UNK
  3. BACTRIM [Suspect]
  4. COMPAZINE [Suspect]

REACTIONS (1)
  - Drug hypersensitivity [Unknown]
